FAERS Safety Report 19683556 (Version 1)
Quarter: 2021Q3

REPORT INFORMATION
  Report Type: Spontaneous
  Country: IR (occurrence: IR)
  Receive Date: 20210811
  Receipt Date: 20210811
  Transmission Date: 20211014
  Serious: Yes (Other)
  Sender: FDA-Public Use
  Company Number: IR-MACLEODS PHARMACEUTICALS US LTD-MAC2021032189

PATIENT

DRUGS (2)
  1. TRAMADOL 50 MG [Suspect]
     Active Substance: TRAMADOL
     Indication: PRODUCT USED FOR UNKNOWN INDICATION
     Dosage: 50 MILLIGRAM, TID (8 HOUR)
     Route: 065
  2. SILDENAFIL 100 MG [Suspect]
     Active Substance: SILDENAFIL
     Indication: PRODUCT USED FOR UNKNOWN INDICATION
     Dosage: 100 MILLIGRAM, TID (8 HOURS)
     Route: 065

REACTIONS (4)
  - Eczema [Recovered/Resolved]
  - Eosinophilia [Recovered/Resolved]
  - Lichenoid keratosis [Recovered/Resolved]
  - Erythema multiforme [Recovered/Resolved]
